FAERS Safety Report 8425428-4 (Version None)
Quarter: 2012Q2

REPORT INFORMATION
  Report Type: 
  Country: None (occurrence: None)
  Receive Date: 20120611
  Receipt Date: 20120531
  Transmission Date: 20120825
  Serious: Yes (Other)
  Sender: FDA-Public Use
  Company Number: JP-VERTEX PHARMACEUTICALS INC.-AE-2012-007466

PATIENT
  Age: 65 Year
  Sex: Male

DRUGS (6)
  1. PEG-INTRON [Concomitant]
     Route: 051
     Dates: start: 20120514, end: 20120521
  2. TELAVIC (TELAPREVIR) [Suspect]
     Indication: HEPATITIS C
     Route: 048
     Dates: start: 20120507
  3. PEG-INTRON [Concomitant]
     Indication: HEPATITIS C
     Route: 051
     Dates: start: 20120507, end: 20120507
  4. AMOBAN [Concomitant]
     Route: 048
     Dates: start: 20120515
  5. REBETOL [Concomitant]
     Indication: HEPATITIS C
     Route: 048
     Dates: start: 20120507
  6. PEG-INTRON [Concomitant]
     Route: 051
     Dates: start: 20120528

REACTIONS (1)
  - NEUTROPHIL COUNT DECREASED [None]
